FAERS Safety Report 11383041 (Version 3)
Quarter: 2015Q4

REPORT INFORMATION
  Report Type: Spontaneous
  Country: JP (occurrence: JP)
  Receive Date: 20150814
  Receipt Date: 20151009
  Transmission Date: 20160304
  Serious: Yes (Hospitalization, Other)
  Sender: FDA-Public Use
  Company Number: JP-PFIZER INC-2015267624

PATIENT
  Age: 75 Year
  Sex: Female
  Weight: 53 kg

DRUGS (14)
  1. BISONO [Concomitant]
     Dosage: 0.5 DF, 1X/DAY
     Route: 062
  2. DESYREL [Concomitant]
     Active Substance: TRAZODONE HYDROCHLORIDE
     Dosage: 1 DF, 1X/DAY
     Route: 048
  3. ZOSYN [Suspect]
     Active Substance: PIPERACILLIN SODIUM\TAZOBACTAM SODIUM
     Dosage: 4.5 G, 2X/DAY
     Route: 042
     Dates: start: 20150804, end: 20150805
  4. ZOSYN [Suspect]
     Active Substance: PIPERACILLIN SODIUM\TAZOBACTAM SODIUM
     Dosage: 2.25 G, 2X/DAY
     Route: 042
     Dates: start: 20150807, end: 20150810
  5. MUCODYNE [Concomitant]
     Active Substance: CARBOCYSTEINE
     Dosage: 2 DF, 3X/DAY
     Route: 048
  6. RISPERDAL [Concomitant]
     Active Substance: RISPERIDONE
     Dosage: 1 DF, AS NEEDED
     Route: 048
  7. DIFLUCAN [Suspect]
     Active Substance: FLUCONAZOLE
     Dosage: 100 MG, 1X/DAY
     Route: 048
     Dates: start: 20150731, end: 20150810
  8. ZOSYN [Suspect]
     Active Substance: PIPERACILLIN SODIUM\TAZOBACTAM SODIUM
     Dosage: 2.25 G, 4X/DAY
     Route: 042
     Dates: start: 20150806, end: 20150806
  9. DEPAS [Concomitant]
     Active Substance: ETIZOLAM
     Dosage: 1 DF, 1X/DAY
     Route: 048
  10. MEDICON [Concomitant]
     Active Substance: DEXTROMETHORPHAN HYDROBROMIDE
     Dosage: 1 DF, 4X/DAY
     Route: 048
  11. LASIX + K [Concomitant]
     Dosage: 1 DF, 1X/DAY
     Route: 048
  12. ASTOMIN [Concomitant]
     Active Substance: DIMEMORFAN
     Dosage: 1 DF, 3X/DAY
     Route: 048
  13. ALDACTONE A [Concomitant]
     Active Substance: SPIRONOLACTONE
     Dosage: 1 DF, 1X/DAY
     Route: 048
  14. GASTER [Concomitant]
     Active Substance: FAMOTIDINE
     Dosage: 1 DF, 1X/DAY
     Route: 048

REACTIONS (1)
  - Acute kidney injury [Not Recovered/Not Resolved]

NARRATIVE: CASE EVENT DATE: 201508
